FAERS Safety Report 16458237 (Version 1)
Quarter: 2019Q2

REPORT INFORMATION
  Report Type: Spontaneous
  Country: US (occurrence: US)
  Receive Date: 20190510
  Receipt Date: 20190510
  Transmission Date: 20190711
  Serious: No
  Sender: FDA-Public Use
  Company Number: None

PATIENT
  Age: 34 Year
  Sex: Female

DRUGS (1)
  1. COPAXONE [Suspect]
     Active Substance: GLATIRAMER ACETATE
     Route: 058
     Dates: start: 201807, end: 201807

REACTIONS (6)
  - Drug hypersensitivity [None]
  - Swelling face [None]
  - Eyelid function disorder [None]
  - Mouth swelling [None]
  - Headache [None]
  - Swollen tongue [None]

NARRATIVE: CASE EVENT DATE: 20180720
